FAERS Safety Report 11067240 (Version 1)
Quarter: 2015Q2

REPORT INFORMATION
  Report Type: Spontaneous
  Country: US (occurrence: US)
  Receive Date: 20150425
  Receipt Date: 20150425
  Transmission Date: 20150821
  Serious: No
  Sender: FDA-Public Use
  Company Number: US-009507513-1504USA020793

PATIENT
  Age: 53 Year
  Sex: Female

DRUGS (3)
  1. ZORVOLEX [Concomitant]
     Active Substance: DICLOFENAC
  2. NEXIUM [Concomitant]
     Active Substance: ESOMEPRAZOLE MAGNESIUM
  3. BELSOMRA [Suspect]
     Active Substance: SUVOREXANT
     Dosage: 1 DF, UNK
     Route: 048
     Dates: start: 20150406, end: 20150406

REACTIONS (3)
  - Disorientation [Recovered/Resolved]
  - Insomnia [Recovered/Resolved]
  - Feeling abnormal [Recovered/Resolved]

NARRATIVE: CASE EVENT DATE: 20150406
